FAERS Safety Report 7280663-6 (Version None)
Quarter: 2011Q1

REPORT INFORMATION
  Report Type: 
  Country: None (occurrence: None)
  Receive Date: 20110208
  Receipt Date: 20110201
  Transmission Date: 20110831
  Serious: Yes (Hospitalization)
  Sender: FDA-Public Use
  Company Number: A0867030A

PATIENT
  Age: 46 Year
  Sex: Female

DRUGS (1)
  1. AVANDAMET [Suspect]
     Indication: DIABETES MELLITUS
     Route: 048
     Dates: start: 20030101, end: 20070701

REACTIONS (3)
  - CARDIAC FAILURE [None]
  - ANGIOEDEMA [None]
  - MYOCARDIAL INFARCTION [None]
